FAERS Safety Report 10090005 (Version 1)
Quarter: 2014Q2

REPORT INFORMATION
  Report Type: Spontaneous
  Country: US (occurrence: None)
  Receive Date: 20140415
  Receipt Date: 20140415
  Transmission Date: 20141212
  Serious: Yes (Hospitalization)
  Sender: FDA-Public Use
  Company Number: 54973 AE # 1531

PATIENT
  Age: 1 Month
  Sex: 0

DRUGS (1)
  1. HYLANDS BABY DIAPER OINTMENT [Suspect]
     Indication: DERMATITIS DIAPER
     Dosage: 2-3 APPS X 2-3 DAYS

REACTIONS (2)
  - Rash [None]
  - Blister [None]
